FAERS Safety Report 15889152 (Version 1)
Quarter: 2019Q1

REPORT INFORMATION
  Report Type: Spontaneous
  Country: US (occurrence: US)
  Receive Date: 20190107
  Receipt Date: 20190107
  Transmission Date: 20190417
  Serious: No
  Sender: FDA-Public Use
  Company Number: None

PATIENT
  Age: 72 Year
  Sex: Male

DRUGS (1)
  1. HUMIRA [Suspect]
     Active Substance: ADALIMUMAB
     Indication: RHEUMATOID ARTHRITIS
     Dosage: 40MG/0.8ML EVERY OTHER WEEK SQ
     Route: 058
     Dates: start: 20170719, end: 20181230

REACTIONS (4)
  - Eye infection [None]
  - Eye pain [None]
  - Therapy cessation [None]
  - Cataract operation [None]

NARRATIVE: CASE EVENT DATE: 20181204
